FAERS Safety Report 11995716 (Version 2)
Quarter: 2016Q1

REPORT INFORMATION
  Report Type: Spontaneous
  Country: US (occurrence: US)
  Receive Date: 20160203
  Receipt Date: 20160209
  Transmission Date: 20160526
  Serious: Yes (Hospitalization)
  Sender: FDA-Public Use
  Company Number: US-PFIZER INC-2016049666

PATIENT
  Age: 64 Year
  Sex: Female
  Weight: 72 kg

DRUGS (11)
  1. TACROLIMUS. [Concomitant]
     Active Substance: TACROLIMUS
     Indication: PROPHYLAXIS AGAINST TRANSPLANT REJECTION
     Dosage: 2.5 MG, 2X/DAY
     Route: 048
     Dates: start: 20030306
  2. FLUPHENAZINE [Concomitant]
     Active Substance: FLUPHENAZINE
     Indication: PSYCHOTIC DISORDER
     Dosage: 30 MG, 10MG 3 TABLETS AT BEDTIME
  3. SENSIPAR [Concomitant]
     Active Substance: CINACALCET HYDROCHLORIDE
     Indication: BLOOD CALCIUM ABNORMAL
     Dosage: 90 MG, 1X/DAY
     Route: 048
     Dates: start: 2006
  4. SENSIPAR [Concomitant]
     Active Substance: CINACALCET HYDROCHLORIDE
     Dosage: 180 MG, UNK
  5. RAPAMUNE [Suspect]
     Active Substance: SIROLIMUS
     Indication: PROPHYLAXIS AGAINST TRANSPLANT REJECTION
     Dosage: 3 DF, 1X/DAY, TWO 1MG PILLS AND ONE 0.5MG PILL
     Route: 048
     Dates: start: 20030306, end: 201601
  6. QUETIAPINE [Concomitant]
     Active Substance: QUETIAPINE
     Indication: SCHIZOPHRENIA
     Dosage: 200MG TABLET AT 6PM AND 400MG AT BEDTIME
     Route: 048
     Dates: start: 1996, end: 20160118
  7. VITAMIN D [Concomitant]
     Active Substance: CHOLECALCIFEROL
     Indication: VITAMIN D DECREASED
     Dosage: 2000 IU, 1X/DAY, 2 CAPSULES ONE TIME A DAY
     Route: 048
  8. BENZATROPINE [Concomitant]
     Active Substance: BENZTROPINE
     Indication: PSYCHOTIC DISORDER
     Dosage: 1 MG, DAILY, 1 MG TABLET EVERY MORNING
     Route: 048
  9. BENZATROPINE [Concomitant]
     Active Substance: BENZTROPINE
     Dosage: 0.5 MG, UNK
  10. IRON [Concomitant]
     Active Substance: IRON
     Indication: BLOOD IRON DECREASED
     Dosage: 325 MG, 2X/DAY, ONE TABLET
     Route: 048
  11. FLUOXETINE [Concomitant]
     Active Substance: FLUOXETINE HYDROCHLORIDE
     Indication: PSYCHOTIC DISORDER
     Dosage: 20 MG, 1X/DAY
     Route: 048
     Dates: start: 1996

REACTIONS (5)
  - Renal failure [Unknown]
  - Condition aggravated [Unknown]
  - Heart rate decreased [Unknown]
  - Activities of daily living impaired [Unknown]
  - Asthenia [Unknown]
